FAERS Safety Report 25612443 (Version 1)
Quarter: 2025Q3

REPORT INFORMATION
  Report Type: Spontaneous
  Country: GB (occurrence: GB)
  Receive Date: 20250728
  Receipt Date: 20250728
  Transmission Date: 20251020
  Serious: Yes (Other)
  Sender: PFIZER
  Company Number: None

PATIENT
  Age: 36 Year

DRUGS (11)
  1. KETAMINE HYDROCHLORIDE [Suspect]
     Active Substance: KETAMINE HYDROCHLORIDE
  2. ACETAMINOPHEN [Concomitant]
     Active Substance: ACETAMINOPHEN
  3. NITROFURANTOIN [Concomitant]
     Active Substance: NITROFURANTOIN
     Dosage: 100 MG, 2X/DAY
  4. DIAZEPAM [Concomitant]
     Active Substance: DIAZEPAM
  5. CITALOPRAM [Concomitant]
     Active Substance: CITALOPRAM
     Dosage: 10MG TABLETS, ONE TO BE TAKEN EACH DAY
  6. CITALOPRAM [Concomitant]
     Active Substance: CITALOPRAM
     Dosage: 20MG TABLETS, ONE TO BE TAKEN EACH DAY
  7. IBUPROFEN [Concomitant]
     Active Substance: IBUPROFEN
  8. PROPRANOLOL [Concomitant]
     Active Substance: PROPRANOLOL HYDROCHLORIDE
  9. BUTYLSCOPOLAMINE BROMIDE [Concomitant]
     Active Substance: BUTYLSCOPOLAMINE BROMIDE
     Dosage: 10 MG, 3X/DAY
  10. ZOPICLONE [Concomitant]
     Active Substance: ZOPICLONE
  11. COCODAMOL [Concomitant]
     Active Substance: ACETAMINOPHEN\CODEINE PHOSPHATE

REACTIONS (8)
  - Urinary tract disorder [Unknown]
  - Biliary tract disorder [Unknown]
  - Urinary incontinence [Unknown]
  - Cystitis [Unknown]
  - Decreased appetite [Unknown]
  - Prescription drug used without a prescription [Unknown]
  - Intentional product misuse [Unknown]
  - Overdose [Unknown]
